FAERS Safety Report 9971022 (Version 1)
Quarter: 2014Q1

REPORT INFORMATION
  Report Type: Report from Study
  Country: US (occurrence: US)
  Receive Date: 20140306
  Receipt Date: 20140306
  Transmission Date: 20141002
  Serious: No
  Sender: FDA-Public Use
  Company Number: US-ABBVIE-13P-163-1153138-00

PATIENT
  Age: 64 Year
  Sex: Male

DRUGS (5)
  1. HUMIRA [Suspect]
     Indication: CROHN^S DISEASE
     Dosage: STARTING DOSE
     Dates: start: 20130927
  2. NEXIUM [Concomitant]
     Indication: GASTROOESOPHAGEAL REFLUX DISEASE
  3. TRAMADOL [Concomitant]
     Indication: PAIN
  4. BENICAR HCT [Concomitant]
     Indication: HYPERTENSION
  5. TESTIM [Concomitant]
     Indication: BLOOD TESTOSTERONE DECREASED
     Route: 061

REACTIONS (2)
  - Injection site bruising [Not Recovered/Not Resolved]
  - Injection site haemorrhage [Not Recovered/Not Resolved]
